FAERS Safety Report 18556492 (Version 3)
Quarter: 2021Q1

REPORT INFORMATION
  Report Type: Spontaneous
  Country: US (occurrence: US)
  Receive Date: 20201128
  Receipt Date: 20210105
  Transmission Date: 20210419
  Serious: Yes (Other)
  Sender: FDA-Public Use
  Company Number: US-TAKEDA-2020TUS050681

PATIENT
  Age: 48 Year
  Sex: Female
  Weight: 59.86 kg

DRUGS (22)
  1. GAMMAGARD LIQUID [Suspect]
     Active Substance: HUMAN IMMUNOGLOBULIN G
     Dosage: 1000 MILLIGRAM/KILOGRAM, Q4WEEKS
     Route: 042
     Dates: start: 20201104
  2. GAMMAGARD LIQUID [Suspect]
     Active Substance: HUMAN IMMUNOGLOBULIN G
     Indication: AUTONOMIC NEUROPATHY
     Dosage: 60 GRAM, Q4WEEKS
     Route: 042
     Dates: start: 20201104
  3. MIDODRINE [Concomitant]
     Active Substance: MIDODRINE
  4. MAGNESIUM [Concomitant]
     Active Substance: MAGNESIUM
  5. ELECTROLYTES NOS [Concomitant]
     Active Substance: ELECTROLYTES NOS
  6. ACETAMINOPHEN. [Concomitant]
     Active Substance: ACETAMINOPHEN
  7. VITAMIN C [Concomitant]
     Active Substance: ASCORBIC ACID
  8. GINSENG NOS [Concomitant]
     Active Substance: HERBALS
  9. VITAMINS NOS [Concomitant]
     Active Substance: VITAMINS
  10. MESTINON [Concomitant]
     Active Substance: PYRIDOSTIGMINE BROMIDE
  11. VITAMIN B12 [Concomitant]
     Active Substance: CYANOCOBALAMIN
  12. HUMAN IMMUNOGLOBULIN [Concomitant]
     Indication: PRODUCT USED FOR UNKNOWN INDICATION
  13. HEPARIN [Concomitant]
     Active Substance: HEPARIN SODIUM
  14. ZONISAMIDE. [Concomitant]
     Active Substance: ZONISAMIDE
  15. PROBIOTICS NOS [Concomitant]
     Active Substance: PROBIOTICS NOS
  16. VITAMIN D2 [Concomitant]
     Active Substance: ERGOCALCIFEROL
  17. GAMMAGARD LIQUID [Suspect]
     Active Substance: HUMAN IMMUNOGLOBULIN G
     Dosage: 2000 MILLIGRAM/KILOGRAM, Q4WEEKS
     Route: 042
     Dates: start: 20201104
  18. DIPHENHYDRAMINE. [Concomitant]
     Active Substance: DIPHENHYDRAMINE
  19. EPINEPHRINE. [Concomitant]
     Active Substance: EPINEPHRINE
  20. SODIUM CHLORIDE. [Concomitant]
     Active Substance: SODIUM CHLORIDE
  21. GAMMAGARD LIQUID [Suspect]
     Active Substance: HUMAN IMMUNOGLOBULIN G
     Dosage: 120 MILLIGRAM/KILOGRAM, Q4WEEKS
     Route: 042
     Dates: start: 20201104
  22. LIDOCAINE. [Concomitant]
     Active Substance: LIDOCAINE

REACTIONS (8)
  - Migraine [Unknown]
  - Meningitis aseptic [Unknown]
  - Tachycardia [Unknown]
  - Infusion related reaction [Unknown]
  - Headache [Unknown]
  - Product use in unapproved indication [Unknown]
  - Adverse drug reaction [Unknown]
  - Hypertension [Unknown]

NARRATIVE: CASE EVENT DATE: 20201109
